FAERS Safety Report 19433986 (Version 1)
Quarter: 2021Q2

REPORT INFORMATION
  Report Type: Spontaneous
  Country: US (occurrence: US)
  Receive Date: 20210618
  Receipt Date: 20210618
  Transmission Date: 20210717
  Serious: No
  Sender: FDA-Public Use
  Company Number: US-PFIZER INC-2021311007

PATIENT
  Age: 68 Year
  Sex: Female

DRUGS (1)
  1. INLYTA [Suspect]
     Active Substance: AXITINIB
     Indication: RENAL CANCER
     Dosage: 5 MG, 2X/DAY
     Dates: start: 20210215

REACTIONS (10)
  - Vomiting [Unknown]
  - Tremor [Unknown]
  - Bladder disorder [Unknown]
  - Memory impairment [Unknown]
  - Headache [Unknown]
  - Abdominal pain upper [Unknown]
  - Thinking abnormal [Unknown]
  - Sleep disorder [Unknown]
  - Feeling abnormal [Unknown]
  - Groin pain [Unknown]

NARRATIVE: CASE EVENT DATE: 20210310
